FAERS Safety Report 15761187 (Version 1)
Quarter: 2018Q4

REPORT INFORMATION
  Report Type: Report from Study
  Country: CA (occurrence: CA)
  Receive Date: 20181226
  Receipt Date: 20181226
  Transmission Date: 20190205
  Serious: Yes (Other)
  Sender: FDA-Public Use
  Company Number: CA-PFIZER INC-2018439665

PATIENT
  Age: 78 Year
  Sex: Female

DRUGS (26)
  1. CODEINE [Suspect]
     Active Substance: CODEINE
     Dosage: UNK
  2. RANITIDINE HYDROCHLORIDE. [Suspect]
     Active Substance: RANITIDINE HYDROCHLORIDE
     Indication: GASTRIC DISORDER
     Dosage: 150 MG, 2X/DAY
     Route: 048
  3. XOLAIR [Suspect]
     Active Substance: OMALIZUMAB
     Dosage: 300 MG, 1X/DAY
     Route: 058
  4. XOLAIR [Suspect]
     Active Substance: OMALIZUMAB
     Dosage: UNK
     Route: 058
  5. AMLODIPINE [Concomitant]
     Active Substance: AMLODIPINE BESYLATE
     Dosage: 2 DF, 1X/DAY
  6. MINT PANTOPRAZOLE [Concomitant]
     Dosage: 1 DF, 1X/DAY
  7. TARO-WARFARIN [Concomitant]
     Active Substance: WARFARIN
     Dosage: 1 DF, 1X/DAY
  8. PREDNISONE. [Concomitant]
     Active Substance: PREDNISONE
     Dosage: 1 DF, 1X/DAY
     Route: 048
  9. RAMIPRIL. [Suspect]
     Active Substance: RAMIPRIL
     Dosage: UNK
  10. ALENDRONATE [Concomitant]
     Active Substance: ALENDRONATE SODIUM
     Dosage: 1 DF, WEEKLY
  11. HOLISTA OMEGA 3 [Concomitant]
     Dosage: UNK
  12. MINT-CIPROFLOXACIN [Concomitant]
     Active Substance: CIPROFLOXACIN
     Dosage: 1 DF, 2X/DAY
     Route: 048
  13. APO-PREDNISONE [Concomitant]
     Active Substance: PREDNISONE
     Dosage: 2 DF, 1X/DAY
     Route: 048
  14. MONTELUKAST SODIUM. [Suspect]
     Active Substance: MONTELUKAST SODIUM
     Dosage: 10 MG, 1X/DAY
     Route: 048
  15. XOLAIR [Suspect]
     Active Substance: OMALIZUMAB
     Indication: CHRONIC SPONTANEOUS URTICARIA
     Dosage: UNK
     Route: 058
  16. XOLAIR [Suspect]
     Active Substance: OMALIZUMAB
     Dosage: 150 MG, 1X/DAY
     Route: 058
  17. LOVENOX [Concomitant]
     Active Substance: ENOXAPARIN SODIUM
     Dosage: 1 DF, 1X/DAY
  18. METRONIDAZOLE. [Concomitant]
     Active Substance: METRONIDAZOLE
     Dosage: 2 DF, 3X/DAY
     Route: 048
  19. REACTINE [CETIRIZINE HYDROCHLORIDE] [Concomitant]
     Active Substance: CETIRIZINE HYDROCHLORIDE
     Dosage: 1 DF, 1X/DAY
     Route: 048
  20. AERIUS [EBASTINE] [Concomitant]
     Active Substance: EBASTINE
     Dosage: 1 DF, 1X/DAY
     Route: 048
  21. AIROMIR [SALBUTAMOL] [Concomitant]
     Active Substance: ALBUTEROL SULFATE
     Dosage: 1 DF, UNK
     Route: 055
  22. PULMICORT TURBUHALER [Concomitant]
     Active Substance: BUDESONIDE
     Dosage: 1 DF, 2X/DAY
  23. EPIPEN [Concomitant]
     Active Substance: EPINEPHRINE
     Indication: HYPERSENSITIVITY
     Dosage: UNK
     Route: 058
  24. JAMP VITAMIN D [Concomitant]
     Dosage: 1 DF, WEEKLY
  25. JAMP-DOCUSATE SODIUM [Concomitant]
     Indication: CONSTIPATION
     Dosage: 1 DF, 3X/DAY
  26. VOLTAREN [DICLOFENAC] [Concomitant]
     Active Substance: DICLOFENAC SODIUM
     Dosage: UNK

REACTIONS (14)
  - Sensitisation [Recovered/Resolved]
  - Urticaria [Recovered/Resolved]
  - Blood pressure systolic increased [Recovered/Resolved]
  - Dyspnoea [Recovered/Resolved]
  - Throat tightness [Recovered/Resolved]
  - Dysphagia [Recovered/Resolved]
  - Hypersensitivity [Recovered/Resolved]
  - Lip swelling [Recovered/Resolved]
  - Paraesthesia oral [Recovered/Resolved]
  - Blood pressure increased [Recovered/Resolved]
  - Lip disorder [Recovered/Resolved]
  - Swollen tongue [Recovered/Resolved]
  - Food allergy [Recovered/Resolved]
  - Eating disorder [Recovered/Resolved]
